FAERS Safety Report 19421850 (Version 2)
Quarter: 2021Q3

REPORT INFORMATION
  Report Type: Spontaneous
  Country: US (occurrence: US)
  Receive Date: 20210616
  Receipt Date: 20210702
  Transmission Date: 20211014
  Serious: No
  Sender: FDA-Public Use
  Company Number: US-UNITED THERAPEUTICS-UNT-2021-010676

PATIENT
  Sex: Male

DRUGS (1)
  1. TYVASO [Suspect]
     Active Substance: TREPROSTINIL
     Indication: PRODUCT USED FOR UNKNOWN INDICATION
     Dosage: UNK
     Dates: end: 20210101

REACTIONS (6)
  - Asthenia [Unknown]
  - Gait disturbance [Unknown]
  - Therapy interrupted [Unknown]
  - General physical health deterioration [Unknown]
  - Dyspnoea [Unknown]
  - Balance disorder [Unknown]
